FAERS Safety Report 7893170-4 (Version None)
Quarter: 2011Q4

REPORT INFORMATION
  Report Type: 
  Country: None (occurrence: None)
  Receive Date: 20111104
  Receipt Date: 20111024
  Transmission Date: 20120403
  Serious: Yes (Hospitalization, Other)
  Sender: FDA-Public Use
  Company Number: PHHY2011JP95206

PATIENT
  Age: 64 Year
  Sex: Female

DRUGS (4)
  1. EXELON [Suspect]
     Indication: DEMENTIA ALZHEIMER'S TYPE
     Dosage: 4.5 MG, DAILY
     Route: 062
     Dates: start: 20110823, end: 20110826
  2. DAI-KENCHU-TO [Concomitant]
     Route: 048
  3. GASMOTIN [Concomitant]
     Route: 048
  4. EXELON [Suspect]
     Dosage: 4.5 MG, DAILY
     Route: 062
     Dates: start: 20110907, end: 20110916

REACTIONS (5)
  - NAUSEA [None]
  - ASPIRATION [None]
  - VOMITING [None]
  - PNEUMONIA ASPIRATION [None]
  - PALLOR [None]
